FAERS Safety Report 24064169 (Version 1)
Quarter: 2024Q3

REPORT INFORMATION
  Report Type: Spontaneous
  Country: CN (occurrence: CN)
  Receive Date: 20240709
  Receipt Date: 20240709
  Transmission Date: 20241017
  Serious: Yes (Hospitalization)
  Sender: ACCORD
  Company Number: None

PATIENT
  Age: 60 Year
  Sex: Female

DRUGS (4)
  1. TRASTUZUMAB [Suspect]
     Active Substance: TRASTUZUMAB
     Indication: Breast cancer
     Dosage: 450 MILLIGRAM, QD, 150 MILLIGRAM
     Dates: start: 20240614, end: 20240614
  2. DOCETAXEL [Suspect]
     Active Substance: DOCETAXEL\DOCETAXEL ANHYDROUS
     Indication: Breast cancer
     Dosage: 110 MILLIGRAM, QD
     Dates: start: 20240613, end: 20240613
  3. CARBOPLATIN [Suspect]
     Active Substance: CARBOPLATIN
     Indication: Breast cancer
     Dosage: 500 MILLIGRAM, QD
     Dates: start: 20240613, end: 20240613
  4. PEGYLATED RECOMBINANT HUMAN ERYTHROPOIETIN [Concomitant]
     Indication: Prophylaxis
     Dosage: 3 MILLIGRAM, IMMEDIATELY
     Dates: start: 20240614, end: 20240614

REACTIONS (1)
  - Myelosuppression [Unknown]

NARRATIVE: CASE EVENT DATE: 20240618
